FAERS Safety Report 9913093 (Version 1)
Quarter: 2014Q1

REPORT INFORMATION
  Report Type: Spontaneous
  Country: US (occurrence: None)
  Receive Date: 20140214
  Receipt Date: 20140214
  Transmission Date: 20141002
  Serious: Yes (Hospitalization)
  Sender: FDA-Public Use
  Company Number: AEGR000283

PATIENT
  Age: 58 Year
  Sex: Male
  Weight: 150.6 kg

DRUGS (2)
  1. JUXTAPID (LOMITAPIDE) CAPSULE, 5MG [Suspect]
     Indication: TYPE IIA HYPERLIPIDAEMIA
     Route: 048
     Dates: start: 20131017, end: 20140102
  2. ATORVASTATIN (ATORVASTATIN) TABLE [Concomitant]

REACTIONS (1)
  - Neuropathy peripheral [None]
